FAERS Safety Report 12675127 (Version 1)
Quarter: 2016Q3

REPORT INFORMATION
  Report Type: Spontaneous
  Country: US (occurrence: US)
  Receive Date: 20160822
  Receipt Date: 20160822
  Transmission Date: 20161109
  Serious: Yes (Hospitalization, Other)
  Sender: FDA-Public Use
  Company Number: US-LUNDBECK-DKLU2017876

PATIENT
  Age: 32 Year
  Sex: Female

DRUGS (4)
  1. NORTHERA [Suspect]
     Active Substance: DROXIDOPA
     Route: 065
  2. NORTHERA [Suspect]
     Active Substance: DROXIDOPA
     Indication: AUTONOMIC NEUROPATHY
     Route: 065
     Dates: start: 201412
  3. NORTHERA [Suspect]
     Active Substance: DROXIDOPA
     Dosage: THERAPY RESTART
     Route: 065
     Dates: start: 201605
  4. NORTHERA [Suspect]
     Active Substance: DROXIDOPA
     Route: 065

REACTIONS (4)
  - Localised infection [Unknown]
  - Ovarian haemorrhage [Unknown]
  - Autoimmune disorder [Unknown]
  - Hypertension [Unknown]

NARRATIVE: CASE EVENT DATE: 201606
